FAERS Safety Report 8172882 (Version 3)
Quarter: 2013Q1

REPORT INFORMATION
  Report Type: Spontaneous
  Country: US (occurrence: US)
  Receive Date: 20111007
  Receipt Date: 20130313
  Transmission Date: 20140127
  Serious: Yes (Hospitalization, Other)
  Sender: FDA-Public Use
  Company Number: US-BAYER-2011-091728

PATIENT
  Age: 32 Year
  Sex: Female

DRUGS (2)
  1. YAZ [Suspect]
     Dosage: 3/20 M.G./MCG
     Dates: start: 200808, end: 200901
  2. ANALGESICS [Concomitant]
     Indication: DISCOMFORT

REACTIONS (9)
  - Gallbladder disorder [None]
  - Oophorectomy [None]
  - Ovarian cyst ruptured [None]
  - Injury [None]
  - Pain [None]
  - General physical health deterioration [None]
  - Anxiety [None]
  - Anhedonia [None]
  - Emotional distress [None]
